FAERS Safety Report 17025027 (Version 3)
Quarter: 2021Q3

REPORT INFORMATION
  Report Type: Other
  Country: IT (occurrence: IT)
  Receive Date: 20191113
  Receipt Date: 20210928
  Transmission Date: 20211014
  Serious: Yes (Hospitalization)
  Sender: FDA-Public Use
  Company Number: IT-ROCHE-2466660

PATIENT
  Age: 55 Year
  Sex: Female

DRUGS (15)
  1. LEVOFLOXACIN. [Suspect]
     Active Substance: LEVOFLOXACIN
     Indication: ROSEOLOVIRUS TEST POSITIVE
     Route: 065
  2. DELORAZEPAM [Concomitant]
     Active Substance: DELORAZEPAM
  3. BETAHISTINE [Concomitant]
     Active Substance: BETAHISTINE
  4. ROSUVASTATIN. [Concomitant]
     Active Substance: ROSUVASTATIN
  5. MACROGOL [Concomitant]
     Active Substance: POLYETHYLENE GLYCOLS
  6. PANTOPRAZOLE [Concomitant]
     Active Substance: PANTOPRAZOLE
  7. ADEMETIONINE [Concomitant]
     Active Substance: ADEMETIONINE
  8. BIPERIDENE [Concomitant]
     Active Substance: BIPERIDEN
  9. GANCICLOVIR. [Suspect]
     Active Substance: GANCICLOVIR
     Indication: ROSEOLOVIRUS TEST POSITIVE
     Route: 065
  10. CEFTRIAXONE. [Suspect]
     Active Substance: CEFTRIAXONE
     Indication: ROSEOLOVIRUS TEST POSITIVE
     Route: 065
  11. FENOFIBRATE. [Concomitant]
     Active Substance: FENOFIBRATE
     Indication: PRODUCT USED FOR UNKNOWN INDICATION
     Route: 065
  12. OLMESARTAN MEDOXOMIL. [Concomitant]
     Active Substance: OLMESARTAN MEDOXOMIL
  13. CHLORAL HYDRATE [Concomitant]
     Active Substance: CHLORAL HYDRATE
  14. SERTRALINE [Concomitant]
     Active Substance: SERTRALINE HYDROCHLORIDE
  15. AMLODIPINE [Concomitant]
     Active Substance: AMLODIPINE BESYLATE

REACTIONS (5)
  - Myelosuppression [Recovering/Resolving]
  - Hypomagnesaemia [Recovered/Resolved]
  - Renal failure [Unknown]
  - Off label use [Unknown]
  - Hypokalaemia [Recovered/Resolved]
